FAERS Safety Report 9214833 (Version 1)
Quarter: 2013Q2

REPORT INFORMATION
  Report Type: Spontaneous
  Country: US (occurrence: US)
  Receive Date: 20130405
  Receipt Date: 20130405
  Transmission Date: 20140414
  Serious: Yes (Other)
  Sender: FDA-Public Use
  Company Number: CHPA2013US005752

PATIENT
  Sex: Male

DRUGS (1)
  1. MAALOX ANTACID/ANTIGAS MAX LIQ [Suspect]
     Indication: ULCER
     Dosage: UNK, UNK
     Route: 048
     Dates: start: 1971

REACTIONS (3)
  - Ulcer [Recovering/Resolving]
  - Splenomegaly [Recovered/Resolved]
  - Off label use [Unknown]
